FAERS Safety Report 6641777-4 (Version None)
Quarter: 2010Q1

REPORT INFORMATION
  Report Type: 
  Country: None (occurrence: None)
  Receive Date: 20100316
  Receipt Date: 20100305
  Transmission Date: 20100710
  Serious: Yes (Hospitalization)
  Sender: FDA-Public Use
  Company Number: 2010S1000143

PATIENT
  Sex: Female

DRUGS (3)
  1. ROXICODONE [Suspect]
     Dosage: 30 MG
  2. METHADONE HCL [Suspect]
  3. XANAX [Suspect]

REACTIONS (2)
  - INTERVERTEBRAL DISCITIS [None]
  - OSTEOMYELITIS [None]
